FAERS Safety Report 7396180-9 (Version None)
Quarter: 2011Q2

REPORT INFORMATION
  Report Type: 
  Country: None (occurrence: None)
  Receive Date: 20110406
  Receipt Date: 20110324
  Transmission Date: 20111010
  Serious: Yes (Life-Threatening, Hospitalization, Other)
  Sender: FDA-Public Use
  Company Number: US-ELI_LILLY_AND_COMPANY-US201102002831

PATIENT
  Sex: Male

DRUGS (11)
  1. VICODIN [Concomitant]
     Dosage: 500 MG, OTHER
  2. VICODIN [Concomitant]
     Dosage: 750 MG, OTHER
  3. COUMADIN [Concomitant]
     Dosage: 1 MG, DAILY (1/D)
  4. FORTEO [Suspect]
     Indication: OSTEOPOROSIS
     Dosage: 20 UG, DAILY (1/D)
     Dates: start: 20100101, end: 20101001
  5. COUMADIN [Concomitant]
     Dosage: 3 MG, DAILY (1/D)
  6. REMICADE [Concomitant]
     Dosage: UNK, 6/W
     Route: 042
  7. ASPIRIN [Concomitant]
     Dosage: 81 MG, DAILY (1/D)
  8. FORTEO [Suspect]
     Dosage: 20 UG, QD
     Dates: start: 20101001
  9. NEXIUM [Concomitant]
     Dosage: UNK, DAILY (1/D)
  10. SYMBICORT [Concomitant]
  11. FOLIC ACID [Concomitant]
     Dosage: UNK, DAILY (1/D)

REACTIONS (2)
  - MALAISE [None]
  - INTESTINAL OBSTRUCTION [None]
